FAERS Safety Report 23610862 (Version 1)
Quarter: 2024Q1

REPORT INFORMATION
  Report Type: Spontaneous
  Country: FR (occurrence: FR)
  Receive Date: 20240308
  Receipt Date: 20240308
  Transmission Date: 20240410
  Serious: Yes (Hospitalization, Other)
  Sender: FDA-Public Use
  Company Number: FR-Accord-408513

PATIENT
  Age: 30 Year
  Sex: Female

DRUGS (3)
  1. VORICONAZOLE [Suspect]
     Active Substance: VORICONAZOLE
     Indication: Pneumonia fungal
     Dosage: 550 MG BID FOR 4 DAYS, MIC 0.38 MICROG/ML
     Route: 065
  2. VORICONAZOLE [Suspect]
     Active Substance: VORICONAZOLE
     Dosage: 200 MG BID CONSIDERING THE MINIMALINHIBITORY CONCENTRATIONS (MIC)
     Route: 048
  3. AMPHOTERICIN B [Concomitant]
     Active Substance: AMPHOTERICIN B
     Indication: Pneumonia fungal
     Dosage: 3 MILLIGRAM/KILOGRAM, QD
     Route: 065

REACTIONS (1)
  - Posterior reversible encephalopathy syndrome [Unknown]
